FAERS Safety Report 9131174 (Version 1)
Quarter: 2013Q1

REPORT INFORMATION
  Report Type: Spontaneous
  Country: US (occurrence: US)
  Receive Date: 20130301
  Receipt Date: 20130301
  Transmission Date: 20140127
  Serious: No
  Sender: FDA-Public Use
  Company Number: US-009507513-1302USA010598

PATIENT
  Sex: Female

DRUGS (2)
  1. NASONEX [Suspect]
     Indication: ASTHMA
     Dosage: 2 DF, BID
     Route: 055
  2. SINGULAIR [Concomitant]
     Route: 048

REACTIONS (5)
  - Cough [Recovering/Resolving]
  - Nasal congestion [Recovering/Resolving]
  - Drug dose omission [Unknown]
  - Product quality issue [Unknown]
  - Incorrect route of drug administration [Unknown]
